FAERS Safety Report 13072296 (Version 3)
Quarter: 2017Q1

REPORT INFORMATION
  Report Type: Spontaneous
  Country: US (occurrence: US)
  Receive Date: 20161229
  Receipt Date: 20170210
  Transmission Date: 20170428
  Serious: Yes (Hospitalization, Other)
  Sender: FDA-Public Use
  Company Number: US-PFIZER INC-2016375262

PATIENT
  Age: 37 Year
  Sex: Male
  Weight: 84 kg

DRUGS (1)
  1. XYNTHA [Suspect]
     Active Substance: ANTIHEMOPHILIC FACTOR, HUMAN RECOMBINANT RESIDUES 743-1636 DELETED
     Indication: FACTOR VIII DEFICIENCY
     Dosage: 2000 IU, ALTERNATE DAY (2000 UNITS EVERY OTHER DAY)
     Route: 042
     Dates: start: 2016

REACTIONS (7)
  - Platelet count increased [Unknown]
  - Drug effect incomplete [Unknown]
  - Product use issue [Unknown]
  - Arthralgia [Unknown]
  - Anxiety [Unknown]
  - Platelet count decreased [Unknown]
  - Haemorrhage [Recovering/Resolving]

NARRATIVE: CASE EVENT DATE: 2016
